FAERS Safety Report 4951507-X (Version None)
Quarter: 2006Q1

REPORT INFORMATION
  Report Type: 
  Country: None (occurrence: None)
  Receive Date: 20060317
  Receipt Date: 20060309
  Transmission Date: 20060701
  Serious: Yes (Hospitalization)
  Sender: FDA-Public Use
  Company Number: ZONI002285

PATIENT
  Age: 26 Year
  Sex: Female

DRUGS (1)
  1. ZONEGRAN [Suspect]
     Indication: TRIGEMINAL NEURALGIA
     Dosage: 100 MG, 1 IN 1 D, ORAL
     Route: 048
     Dates: start: 20050301, end: 20051001

REACTIONS (5)
  - DELUSION [None]
  - DRUG WITHDRAWAL SYNDROME [None]
  - FEELING ABNORMAL [None]
  - MEMORY IMPAIRMENT [None]
  - PSYCHOTIC DISORDER [None]
